FAERS Safety Report 19396796 (Version 1)
Quarter: 2021Q2

REPORT INFORMATION
  Report Type: Report from Study
  Country: DE (occurrence: DE)
  Receive Date: 20210610
  Receipt Date: 20210610
  Transmission Date: 20210717
  Serious: Yes (Death, Hospitalization)
  Sender: FDA-Public Use
  Company Number: DE-BEH-2021132150

PATIENT
  Age: 78 Year
  Sex: Male
  Weight: 69 kg

DRUGS (3)
  1. PRIVIGEN [Suspect]
     Active Substance: HUMAN IMMUNOGLOBULIN G
     Indication: CHRONIC LYMPHOCYTIC LEUKAEMIA
     Dosage: 20 GRAM, TOT
     Route: 042
     Dates: start: 20201007, end: 20201007
  2. PRIVIGEN [Suspect]
     Active Substance: HUMAN IMMUNOGLOBULIN G
     Dosage: 20 GRAM, TOT
     Route: 042
     Dates: start: 20201028, end: 20201028
  3. IBRUTINIB [Concomitant]
     Active Substance: IBRUTINIB
     Dosage: UNK
     Dates: end: 202010

REACTIONS (9)
  - COVID-19 pneumonia [Fatal]
  - Chills [Fatal]
  - COVID-19 [Fatal]
  - Sarcopenia [Unknown]
  - Cough [Fatal]
  - Malnutrition [Unknown]
  - Dependence on oxygen therapy [Fatal]
  - Cognitive disorder [Unknown]
  - Pyrexia [Fatal]

NARRATIVE: CASE EVENT DATE: 202102
